FAERS Safety Report 6451102-X (Version None)
Quarter: 2009Q4

REPORT INFORMATION
  Report Type: 
  Country: None (occurrence: None)
  Receive Date: 20091123
  Receipt Date: 20091111
  Transmission Date: 20100525
  Serious: Yes (Other)
  Sender: FDA-Public Use
  Company Number: US-PFIZER INC-2009298102

PATIENT
  Sex: Female
  Weight: 79.832 kg

DRUGS (2)
  1. LIPITOR [Suspect]
     Indication: BLOOD CHOLESTEROL INCREASED
     Dosage: 10 MG, 1X/DAY
  2. NORVASC [Concomitant]

REACTIONS (3)
  - ARTHRALGIA [None]
  - CARDIAC OPERATION [None]
  - MYALGIA [None]
